FAERS Safety Report 23336194 (Version 2)
Quarter: 2023Q4

REPORT INFORMATION
  Report Type: Spontaneous
  Country: US (occurrence: US)
  Receive Date: 20231225
  Receipt Date: 20231226
  Transmission Date: 20240110
  Serious: No
  Sender: FDA-Public Use
  Company Number: US-TAKEDA-2023TUS123413

PATIENT
  Age: 56 Year
  Sex: Female

DRUGS (1)
  1. TRINTELLIX [Suspect]
     Active Substance: VORTIOXETINE HYDROBROMIDE
     Indication: Major depression
     Dosage: UNK
     Route: 065

REACTIONS (6)
  - Depressed mood [Unknown]
  - Anhedonia [Unknown]
  - Insomnia [Unknown]
  - Anxiety [Unknown]
  - Feeling abnormal [Unknown]
  - Irritability [Unknown]
